FAERS Safety Report 5868728-4 (Version None)
Quarter: 2008Q3

REPORT INFORMATION
  Report Type: 
  Country: None (occurrence: None)
  Receive Date: 20080828
  Receipt Date: 20080815
  Transmission Date: 20090109
  Serious: Yes (Hospitalization)
  Sender: FDA-Public Use
  Company Number: 2008US001815

PATIENT
  Age: 78 Year
  Sex: Female

DRUGS (9)
  1. AMEVIVE [Suspect]
     Indication: PSORIASIS
     Dosage: 15 MG, WEEKLY, INTRAMUSCULAR
     Route: 030
     Dates: start: 20031126, end: 20040211
  2. HUMULIN (INSULIN HUMAN INJECTION, ISOPHANE) [Concomitant]
  3. LASIX [Concomitant]
  4. PROTONIX [Concomitant]
  5. LIPITOR [Concomitant]
  6. PLAVIX [Concomitant]
  7. MELATONIN (MELATONIN) [Concomitant]
  8. CALCIUM CARBONATE [Concomitant]
  9. AMBIEN CR [Concomitant]

REACTIONS (3)
  - INCORRECT DOSE ADMINISTERED [None]
  - MENTAL STATUS CHANGES [None]
  - URINARY TRACT INFECTION [None]
